FAERS Safety Report 4281535-1 (Version None)
Quarter: 2004Q1

REPORT INFORMATION
  Report Type: 
  Country: None (occurrence: None)
  Receive Date: 20040128
  Receipt Date: 20040123
  Transmission Date: 20041129
  Serious: Yes (Other)
  Sender: FDA-Public Use
  Company Number: 2004195661FR

PATIENT
  Age: 41 Year
  Sex: Female

DRUGS (4)
  1. CELEBREX [Suspect]
     Dosage: 100 MG
  2. PLACEBO [Suspect]
     Dosage: SEE IMAGE
  3. ASACARD (ACETYLSALICYLIC ACID) CAPSULE, PROLONGED RELEASE [Suspect]
     Dosage: 10 MG/ML
  4. KETOPROFEN [Concomitant]

REACTIONS (4)
  - DRUG INTOLERANCE [None]
  - LOCALISED OEDEMA [None]
  - PARAESTHESIA [None]
  - URTICARIA GENERALISED [None]
